FAERS Safety Report 22271505 (Version 1)
Quarter: 2023Q2

REPORT INFORMATION
  Report Type: Spontaneous
  Country: CN (occurrence: CN)
  Receive Date: 20230501
  Receipt Date: 20230501
  Transmission Date: 20230722
  Serious: Yes (Hospitalization)
  Sender: FDA-Public Use
  Company Number: CN-ABBOTT-2023A-1363057

PATIENT
  Age: 53 Year
  Sex: Female
  Weight: 60 kg

DRUGS (2)
  1. FENOFIBRATE [Suspect]
     Active Substance: FENOFIBRATE
     Indication: Hyperlipidaemia
     Route: 048
     Dates: start: 20221214, end: 20230214
  2. IMRECOXIB [Suspect]
     Active Substance: IMRECOXIB
     Indication: Pain in extremity
     Route: 048
     Dates: start: 20230204, end: 20230214

REACTIONS (1)
  - Hepatic function abnormal [Recovering/Resolving]

NARRATIVE: CASE EVENT DATE: 20230214
